FAERS Safety Report 24261386 (Version 4)
Quarter: 2024Q4

REPORT INFORMATION
  Report Type: Report from Study
  Country: US (occurrence: US)
  Receive Date: 20240829
  Receipt Date: 20241212
  Transmission Date: 20250115
  Serious: Yes (Hospitalization, Other)
  Sender: NOVARTIS
  Company Number: US-002147023-NVSC2024US172958

PATIENT
  Age: 49 Year
  Sex: Female

DRUGS (1)
  1. KESIMPTA [Suspect]
     Active Substance: OFATUMUMAB
     Indication: Product used for unknown indication
     Dosage: 20 MG, QMO (ONCE A MONTH)
     Route: 058
     Dates: start: 20240612

REACTIONS (9)
  - Renal failure [Recovering/Resolving]
  - Hepatic failure [Recovering/Resolving]
  - Infection [Recovering/Resolving]
  - Dehydration [Recovering/Resolving]
  - Encephalitis [Recovering/Resolving]
  - Coordination abnormal [Recovering/Resolving]
  - Movement disorder [Recovering/Resolving]
  - Fall [Recovering/Resolving]
  - Incorrect dose administered [Recovered/Resolved]

NARRATIVE: CASE EVENT DATE: 20240701
